FAERS Safety Report 19739614 (Version 2)
Quarter: 2021Q3

REPORT INFORMATION
  Report Type: Report from Study
  Country: US (occurrence: US)
  Receive Date: 20210824
  Receipt Date: 20210902
  Transmission Date: 20211014
  Serious: Yes (Hospitalization)
  Sender: FDA-Public Use
  Company Number: US-EXELIXIS-XL18421043413

PATIENT
  Age: 46 Year
  Sex: Male

DRUGS (10)
  1. NIVOLUMAB [Suspect]
     Active Substance: NIVOLUMAB
     Indication: MALIGNANT MELANOMA
     Dosage: 3 MG/KG, Q3WEEKS
     Route: 042
     Dates: start: 20210806
  2. ZYRTEC [Concomitant]
     Active Substance: CETIRIZINE HYDROCHLORIDE
  3. TRAMADOL. [Concomitant]
     Active Substance: TRAMADOL
  4. OXYCODONE [Concomitant]
     Active Substance: OXYCODONE
  5. FLUTICASONE. [Concomitant]
     Active Substance: FLUTICASONE
  6. XL184 [Suspect]
     Active Substance: CABOZANTINIB
     Indication: MALIGNANT MELANOMA
     Dosage: 40 MG, QD
     Route: 048
     Dates: start: 20210806
  7. IPILIMUMAB [Suspect]
     Active Substance: IPILIMUMAB
     Indication: MALIGNANT MELANOMA
     Dosage: 1 MG/KG, Q3WEEKS
     Route: 042
     Dates: start: 20210806
  8. SERTRALINE [Concomitant]
     Active Substance: SERTRALINE HYDROCHLORIDE
  9. MUCINEX [Concomitant]
     Active Substance: GUAIFENESIN
  10. ALBUTEROL. [Concomitant]
     Active Substance: ALBUTEROL

REACTIONS (1)
  - Device related infection [Unknown]

NARRATIVE: CASE EVENT DATE: 20210816
